FAERS Safety Report 21890293 (Version 1)
Quarter: 2023Q1

REPORT INFORMATION
  Report Type: Spontaneous
  Country: US (occurrence: US)
  Receive Date: 20230120
  Receipt Date: 20230120
  Transmission Date: 20230418
  Serious: No
  Sender: FDA-Public Use
  Company Number: US-AMGEN-USASP2023008761

PATIENT
  Sex: Female

DRUGS (1)
  1. PROLIA [Suspect]
     Active Substance: DENOSUMAB
     Indication: Product used for unknown indication
     Dosage: UNK
     Route: 065
     Dates: start: 2022

REACTIONS (4)
  - Skin disorder [Not Recovered/Not Resolved]
  - Toothache [Not Recovered/Not Resolved]
  - Pain in jaw [Not Recovered/Not Resolved]
  - Arthralgia [Not Recovered/Not Resolved]
